FAERS Safety Report 21291849 (Version 2)
Quarter: 2022Q3

REPORT INFORMATION
  Report Type: Spontaneous
  Country: JP (occurrence: JP)
  Receive Date: 20220903
  Receipt Date: 20220913
  Transmission Date: 20221026
  Serious: Yes (Other)
  Sender: FDA-Public Use
  Company Number: JP-SAKK-2022SA357790AA

PATIENT
  Age: 50 Year
  Sex: Male

DRUGS (3)
  1. DUPIXENT [Suspect]
     Active Substance: DUPILUMAB
     Indication: Chronic rhinosinusitis with nasal polyps
     Dosage: 300 MG, QOW
     Route: 058
     Dates: start: 202202
  2. PREDNISOLONE [Concomitant]
     Active Substance: PREDNISOLONE
     Indication: Eosinophilic otitis media
     Dosage: DAILY DOSE: 2 TO 15 MG, DOSING FREQUENCY: ONCE DAILY, USED BY REPEATED DOSE INCREASE AND REDUCTION
     Route: 048
     Dates: start: 1999, end: 2022
  3. PREDNISOLONE [Concomitant]
     Active Substance: PREDNISOLONE
     Indication: Purpura
     Dosage: DAILY DOSE: 2 MG, DOSING FREQUENCY: ONCE DAILY, USED BY REPEATED DOSE INCREASE AND REDUCTION
     Route: 065
     Dates: start: 202206

REACTIONS (3)
  - Eosinophilic granulomatosis with polyangiitis [Unknown]
  - Pain in extremity [Recovering/Resolving]
  - Purpura [Unknown]

NARRATIVE: CASE EVENT DATE: 20220401
